FAERS Safety Report 16101374 (Version 2)
Quarter: 2024Q2

REPORT INFORMATION
  Report Type: Spontaneous
  Country: GB (occurrence: GB)
  Receive Date: 20190321
  Receipt Date: 20240506
  Transmission Date: 20240716
  Serious: Yes (Other)
  Sender: FDA-Public Use
  Company Number: None

PATIENT
  Age: 34 Year
  Sex: Female
  Weight: 75 kg

DRUGS (1)
  1. DOXYCYCLINE [Suspect]
     Active Substance: DOXYCYCLINE
     Indication: Urinary tract infection
     Dosage: UNK (2 WEEK COURSE)
     Route: 048
     Dates: start: 2014, end: 2014

REACTIONS (2)
  - Depression [Recovered/Resolved]
  - Negative thoughts [Recovered/Resolved]
